FAERS Safety Report 9674783 (Version 1)
Quarter: 2013Q4

REPORT INFORMATION
  Report Type: Spontaneous
  Country: US (occurrence: US)
  Receive Date: 20131107
  Receipt Date: 20131107
  Transmission Date: 20140711
  Serious: Yes (Hospitalization)
  Sender: FDA-Public Use
  Company Number: US-BAYER-2013-135115

PATIENT
  Age: 50 Year
  Sex: Female
  Weight: 79.82 kg

DRUGS (15)
  1. YAZ [Suspect]
     Route: 048
  2. GIANVI [Suspect]
     Route: 048
  3. SYNTHROID [Concomitant]
     Dosage: 75MCG
  4. ADVIL [Concomitant]
     Dosage: UNK
  5. FISH OIL [Concomitant]
  6. MULTIVITAMIN [Concomitant]
  7. MAGNESIUM [Concomitant]
  8. SAM-E [Concomitant]
  9. VALERIAN ROOT [Concomitant]
  10. AZITHROMYCIN [Concomitant]
  11. VOLTAREN [Concomitant]
  12. ZALEPLON [Concomitant]
  13. IBUPROFEN [Concomitant]
  14. METHYLPHENIDATE [Concomitant]
  15. Z-PAK [Concomitant]

REACTIONS (1)
  - Pulmonary embolism [None]
